FAERS Safety Report 9265680 (Version 1)
Quarter: 2013Q2

REPORT INFORMATION
  Report Type: Spontaneous
  Country: GB (occurrence: GB)
  Receive Date: 20130501
  Receipt Date: 20130501
  Transmission Date: 20140414
  Serious: Yes (Hospitalization)
  Sender: FDA-Public Use
  Company Number: GB-TEVA-400588ISR

PATIENT
  Age: 44 Year
  Sex: Female

DRUGS (7)
  1. COPAXONE [Suspect]
     Indication: MULTIPLE SCLEROSIS
     Dosage: 20 MILLIGRAM DAILY;
     Route: 058
     Dates: start: 20121001, end: 20130329
  2. DULOXETINE [Concomitant]
  3. PREGABALIN [Concomitant]
  4. BACLOFEN [Concomitant]
  5. SYMBICORT [Concomitant]
  6. CLONAZEPAM [Concomitant]
  7. MODAFINIL [Concomitant]

REACTIONS (3)
  - Injection site abscess [Recovering/Resolving]
  - Skin necrosis [Recovering/Resolving]
  - Necrotising fasciitis [Recovering/Resolving]
